FAERS Safety Report 7100171-2 (Version None)
Quarter: 2010Q4

REPORT INFORMATION
  Report Type: 
  Country: None (occurrence: None)
  Receive Date: 20101112
  Receipt Date: 20100719
  Transmission Date: 20110411
  Serious: No
  Sender: FDA-Public Use
  Company Number: A0871167A

PATIENT
  Sex: Male

DRUGS (4)
  1. CARVEDILOL [Suspect]
     Dosage: 12.5MG TWICE PER DAY
     Route: 048
  2. LITHIUM [Concomitant]
  3. RAMIPRIL [Concomitant]
  4. MIRTAZAPINE [Concomitant]

REACTIONS (1)
  - BLOOD PRESSURE INCREASED [None]
